FAERS Safety Report 23238366 (Version 1)
Quarter: 2023Q4

REPORT INFORMATION
  Report Type: Spontaneous
  Country: PH (occurrence: PH)
  Receive Date: 20231129
  Receipt Date: 20231129
  Transmission Date: 20240110
  Serious: Yes (Hospitalization)
  Sender: FDA-Public Use
  Company Number: PH-BoehringerIngelheim-2023-BI-275107

PATIENT
  Age: 55 Year
  Sex: Female

DRUGS (1)
  1. OFEV [Suspect]
     Active Substance: NINTEDANIB
     Indication: Interstitial lung disease
     Dosage: ADMINISTRATION START AND STOP DATES: AS PER PATIENT 2ND WEEK OF SEPTEMBER 2023 TO FIRST WEEK OF OCTO
     Route: 048
     Dates: start: 202309, end: 202310

REACTIONS (4)
  - Dehydration [Unknown]
  - Dysphonia [Unknown]
  - Vocal cord inflammation [Unknown]
  - Chest discomfort [Unknown]

NARRATIVE: CASE EVENT DATE: 20231011
